FAERS Safety Report 5591039-1 (Version None)
Quarter: 2008Q1

REPORT INFORMATION
  Report Type: 
  Country: None (occurrence: None)
  Receive Date: 20080115
  Receipt Date: 20080108
  Transmission Date: 20080703
  Serious: Yes (Hospitalization)
  Sender: FDA-Public Use
  Company Number: PHBS2008CH00568

PATIENT
  Age: 49 Year
  Sex: Male

DRUGS (7)
  1. TEGRETOL [Suspect]
     Indication: EPILEPSY
     Dosage: 800 MG/D
     Route: 065
  2. REYATAZ [Suspect]
     Dosage: 1 DF/D
     Route: 065
  3. NORVIR [Suspect]
     Dosage: 100 MG/D
     Route: 065
  4. KIVEXA [Suspect]
     Dosage: 1 DF/D
     Route: 065
  5. MALIASIN [Concomitant]
     Dosage: 200 MG/D
     Route: 065
  6. TENORMIN [Concomitant]
     Dosage: 25 MG/D
     Route: 065
  7. ASPIRIN [Concomitant]
     Dosage: 100 MG/D
     Route: 065

REACTIONS (2)
  - DYSPHEMIA [None]
  - MYOCLONUS [None]
